FAERS Safety Report 10881137 (Version 1)
Quarter: 2015Q1

REPORT INFORMATION
  Report Type: Spontaneous
  Country: FR (occurrence: FR)
  Receive Date: 20150303
  Receipt Date: 20150303
  Transmission Date: 20150721
  Serious: Yes (Hospitalization)
  Sender: FDA-Public Use
  Company Number: FR-ASTRAZENECA-2015SE18476

PATIENT
  Age: 5411 Day
  Sex: Female

DRUGS (3)
  1. INEXIUM [Suspect]
     Active Substance: ESOMEPRAZOLE
     Route: 048
     Dates: start: 20150110, end: 20150110
  2. NUREFLEX [Suspect]
     Active Substance: IBUPROFEN
     Indication: DYSMENORRHOEA
     Route: 048
     Dates: end: 201412
  3. SPASFON [Concomitant]
     Active Substance: PHLOROGLUCINOL
     Dosage: ONCE/SINGLE ADMINISTRATION
     Dates: start: 20150110, end: 20150110

REACTIONS (1)
  - Acute kidney injury [Recovering/Resolving]

NARRATIVE: CASE EVENT DATE: 20150113
